FAERS Safety Report 10597562 (Version 1)
Quarter: 2014Q4

REPORT INFORMATION
  Report Type: Spontaneous
  Country: US (occurrence: None)
  Receive Date: 20141119
  Receipt Date: 20141119
  Transmission Date: 20150529
  Serious: Yes (Hospitalization)
  Sender: FDA-Public Use
  Company Number: 201411022

PATIENT
  Age: 70 Year
  Sex: Male

DRUGS (2)
  1. TESTOPEL [Suspect]
     Active Substance: TESTOSTERONE
     Route: 058
     Dates: start: 20131104
  2. AXIRON [Suspect]
     Active Substance: TESTOSTERONE
     Indication: BLOOD TESTOSTERONE DECREASED

REACTIONS (9)
  - Cerebrovascular accident [None]
  - Frustration [None]
  - Anxiety [None]
  - Pain [None]
  - Economic problem [None]
  - Anhedonia [None]
  - Fear [None]
  - Family stress [None]
  - Impaired work ability [None]

NARRATIVE: CASE EVENT DATE: 20140118
